FAERS Safety Report 7754580-9 (Version None)
Quarter: 2011Q3

REPORT INFORMATION
  Report Type: 
  Country: None (occurrence: None)
  Receive Date: 20110915
  Receipt Date: 20110909
  Transmission Date: 20111222
  Serious: Yes (Hospitalization, Other)
  Sender: FDA-Public Use
  Company Number: GB-B.I. PHARMACEUTICALS,INC./RIDGEFIELD-2011-UK-00967UK

PATIENT
  Age: 35 Year
  Sex: Male

DRUGS (2)
  1. VIRAMUNE [Suspect]
  2. TRUVADA [Concomitant]

REACTIONS (3)
  - STEVENS-JOHNSON SYNDROME [None]
  - LIP BLISTER [None]
  - CONJUNCTIVITIS [None]
